FAERS Safety Report 7675589-X (Version None)
Quarter: 2011Q3

REPORT INFORMATION
  Report Type: 
  Country: None (occurrence: None)
  Receive Date: 20110810
  Receipt Date: 20110802
  Transmission Date: 20111222
  Serious: Yes (Other)
  Sender: FDA-Public Use
  Company Number: CA-US-EMD SERONO, INC.-7014723

PATIENT
  Sex: Female

DRUGS (4)
  1. VITAMIN D [Concomitant]
  2. VITAMIN B-12 [Concomitant]
  3. AMANTADINE HCL [Concomitant]
  4. REBIF [Suspect]
     Indication: MULTIPLE SCLEROSIS
     Route: 058
     Dates: start: 20091221

REACTIONS (9)
  - DIARRHOEA [None]
  - INJECTION SITE ERYTHEMA [None]
  - WHITE BLOOD CELL COUNT DECREASED [None]
  - INJECTION SITE PAIN [None]
  - VOMITING [None]
  - FEELING OF BODY TEMPERATURE CHANGE [None]
  - KIDNEY INFECTION [None]
  - AGITATION [None]
  - FATIGUE [None]
